FAERS Safety Report 10020405 (Version 1)
Quarter: 2014Q1

REPORT INFORMATION
  Report Type: Spontaneous
  Country: US (occurrence: US)
  Receive Date: 20140319
  Receipt Date: 20140319
  Transmission Date: 20141002
  Serious: No
  Sender: FDA-Public Use
  Company Number: US-BIOGENIDEC-2014BI022427

PATIENT
  Sex: Female

DRUGS (7)
  1. TECFIDERA [Suspect]
     Indication: MULTIPLE SCLEROSIS
     Route: 048
     Dates: start: 20131229, end: 20140104
  2. TECFIDERA [Suspect]
     Indication: MULTIPLE SCLEROSIS
     Route: 048
     Dates: start: 20140105
  3. IBUPROFEN [Concomitant]
  4. DEXTROAMPHETAMINE [Concomitant]
  5. VITAMIN D [Concomitant]
  6. LORAZEPAM [Concomitant]
  7. VITAMIN B12 [Concomitant]

REACTIONS (1)
  - Influenza like illness [Unknown]
